FAERS Safety Report 10391519 (Version 5)
Quarter: 2016Q2

REPORT INFORMATION
  Report Type: Spontaneous
  Country: US (occurrence: US)
  Receive Date: 20140818
  Receipt Date: 20160616
  Transmission Date: 20160815
  Serious: Yes (Hospitalization, Disabling, Other)
  Sender: FDA-Public Use
  Company Number: US-009507513-1408USA007211

PATIENT
  Sex: Female
  Weight: 60.32 kg

DRUGS (5)
  1. FOSAMAX [Suspect]
     Active Substance: ALENDRONATE SODIUM
     Indication: OSTEOPENIA
     Dosage: UNK UNK, UNKNOWN
     Route: 048
     Dates: start: 2001, end: 200812
  2. FOSAMAX [Suspect]
     Active Substance: ALENDRONATE SODIUM
     Indication: OSTEOPOROSIS
     Dosage: 70 MG, QW
     Route: 048
     Dates: start: 20020918, end: 2009
  3. BONIVA [Suspect]
     Active Substance: IBANDRONATE SODIUM
     Indication: OSTEOPOROSIS
     Dosage: 150 MG, QM
     Route: 048
     Dates: start: 201206, end: 20120803
  4. ALENDRONATE SODIUM. [Suspect]
     Active Substance: ALENDRONATE SODIUM
     Indication: OSTEOPOROSIS
     Dosage: 70 MG, QW
     Route: 048
     Dates: start: 200901, end: 201205
  5. BONIVA [Suspect]
     Active Substance: IBANDRONATE SODIUM
     Dosage: UNK UNK, UNKNOWN
     Route: 065
     Dates: start: 200510, end: 200510

REACTIONS (24)
  - Low turnover osteopathy [Not Recovered/Not Resolved]
  - Haemorrhagic anaemia [Unknown]
  - Procedural hypotension [Unknown]
  - Leukocytosis [Unknown]
  - Electrocardiogram abnormal [Unknown]
  - Osteoarthritis [Unknown]
  - Muscle strain [Unknown]
  - Rotator cuff syndrome [Unknown]
  - Back pain [Not Recovered/Not Resolved]
  - Spinal compression fracture [Unknown]
  - Scoliosis [Not Recovered/Not Resolved]
  - Femur fracture [Recovered/Resolved]
  - Persistent depressive disorder [Not Recovered/Not Resolved]
  - Constipation [Unknown]
  - Therapeutic response changed [Unknown]
  - Bursitis [Unknown]
  - Hypertonic bladder [Unknown]
  - Hypoxia [Recovered/Resolved]
  - Blood glucose increased [Unknown]
  - Facet joint syndrome [Unknown]
  - Osteoporosis [Not Recovered/Not Resolved]
  - Trismus [Unknown]
  - Spinal disorder [Unknown]
  - Treatment failure [Unknown]

NARRATIVE: CASE EVENT DATE: 20061122
